FAERS Safety Report 7364802-4 (Version None)
Quarter: 2011Q1

REPORT INFORMATION
  Report Type: 
  Country: None (occurrence: None)
  Receive Date: 20110321
  Receipt Date: 20110309
  Transmission Date: 20110831
  Serious: Yes (Other)
  Sender: FDA-Public Use
  Company Number: PHHY2011JP19733

PATIENT
  Age: 43 Year
  Sex: Male

DRUGS (3)
  1. METHOTREXATE [Concomitant]
  2. CYCLOPHOSPHAMIDE [Concomitant]
     Dosage: 120 MG, UNK
  3. CYCLOSPORINE [Suspect]
     Indication: ALLOGENIC BONE MARROW TRANSPLANTATION THERAPY
     Dosage: 1.5 MG, UNK

REACTIONS (2)
  - HISTIOCYTOSIS HAEMATOPHAGIC [None]
  - SEPSIS [None]
